FAERS Safety Report 9133032 (Version 1)
Quarter: 2013Q1

REPORT INFORMATION
  Report Type: Spontaneous
  Country: BR (occurrence: BR)
  Receive Date: 20130128
  Receipt Date: 20130128
  Transmission Date: 20140127
  Serious: Yes (Other)
  Sender: FDA-Public Use
  Company Number: BR-PFIZER INC-2013025997

PATIENT
  Age: 83 Year
  Sex: Male

DRUGS (2)
  1. XALATAN [Suspect]
     Indication: GLAUCOMA
     Dosage: 1.5 UG (ONE DROP IN LEFT EYE), 2X/DAY
     Route: 047
     Dates: start: 20070121
  2. XALATAN [Suspect]
     Indication: INTRAOCULAR PRESSURE INCREASED
     Dosage: 1.5 UG (ONE DROP IN RIGHT EYE), 2X/DAY
     Route: 047

REACTIONS (2)
  - Blindness unilateral [Unknown]
  - Incorrect dose administered [Not Recovered/Not Resolved]
